FAERS Safety Report 21139026 (Version 2)
Quarter: 2022Q3

REPORT INFORMATION
  Report Type: Report from Study
  Country: TH (occurrence: TH)
  Receive Date: 20220727
  Receipt Date: 20220902
  Transmission Date: 20221026
  Serious: Yes (Death, Hospitalization)
  Sender: FDA-Public Use
  Company Number: TH-BAYER-2022A101596

PATIENT
  Age: 64 Year
  Sex: Male

DRUGS (19)
  1. STIVARGA [Suspect]
     Active Substance: REGORAFENIB
     Indication: Colorectal cancer
     Dosage: 160 MG, QD
     Route: 048
     Dates: start: 20220621
  2. MONOLIN [Concomitant]
     Dosage: 1X 2
     Route: 048
  3. BISLOC [Concomitant]
     Dosage: 1 DF, QD (PC MORNING)
  4. ATORVASTATIN CALCIUM [Concomitant]
     Active Substance: ATORVASTATIN CALCIUM
     Dosage: 1 DF, HS
  5. VASTAREL [Concomitant]
     Active Substance: TRIMETAZIDINE DIHYDROCHLORIDE
     Dosage: 1 DF, QD (PC MORNING)
  6. HARTSORB [Concomitant]
     Dosage: 1 DF (PM)
     Route: 060
  7. CONTROLOC [Concomitant]
     Active Substance: PANTOPRAZOLE SODIUM
     Dosage: 1 DF, QD (AC MORNING)
  8. ASPREX [Concomitant]
     Dosage: 1 DF (PC MORNING)
  9. DIPAZIDE [Concomitant]
     Indication: Diabetes mellitus
     Dosage: 1 DF, QD (AC MORNING)
  10. FURETIC [Concomitant]
     Dosage: 1 DF, QD (PC MORNING)
  11. METFORMIN [Concomitant]
     Active Substance: METFORMIN HYDROCHLORIDE
     Indication: Diabetes mellitus
     Dosage: 2 DF, BID (PC)
     Route: 048
  12. UREA [Concomitant]
     Active Substance: UREA
     Dosage: BID
  13. TRAMSILONE [Concomitant]
     Indication: Oral disorder
     Dosage: BID
  14. CARDIPLOT [Concomitant]
     Indication: Hypertension
     Dosage: 0.5 DF, QD (PC MORNING)
  15. ISOSORBIDE [Concomitant]
     Active Substance: ISOSORBIDE
     Dosage: PRN
  16. LOSARTAN [Concomitant]
     Active Substance: LOSARTAN
     Dosage: 1 DF, QD
  17. GLIPIZIDE [Concomitant]
     Active Substance: GLIPIZIDE
     Dosage: 1 DF, QD
  18. FUROSEMIDE [Concomitant]
     Active Substance: FUROSEMIDE
     Dosage: 1 DF, QD
  19. METFORMIN [Concomitant]
     Active Substance: METFORMIN HYDROCHLORIDE
     Dosage: 2 DF, BID

REACTIONS (5)
  - Death [Fatal]
  - Abdominal pain [Not Recovered/Not Resolved]
  - Generalised oedema [Not Recovered/Not Resolved]
  - Fatigue [Not Recovered/Not Resolved]
  - Feeding disorder [Not Recovered/Not Resolved]

NARRATIVE: CASE EVENT DATE: 20220718
